FAERS Safety Report 8552493-6 (Version None)
Quarter: 2012Q3

REPORT INFORMATION
  Report Type: 
  Country: None (occurrence: None)
  Receive Date: 20120719
  Receipt Date: 20120703
  Transmission Date: 20120928
  Serious: Yes (Death, Hospitalization)
  Sender: FDA-Public Use
  Company Number: 2009-00567

PATIENT
  Age: 76 Year
  Sex: Male
  Weight: 108 kg

DRUGS (4)
  1. VELCADE [Suspect]
     Indication: MANTLE CELL LYMPHOMA
     Dosage: 2 MG, INTRAVENOUS
     Route: 042
     Dates: start: 20081103, end: 20081103
  2. DEXAMETHASONE TAB [Suspect]
     Indication: MANTLE CELL LYMPHOMA
     Dosage: 40 MG, ORAL
     Route: 048
     Dates: start: 20081103, end: 20081106
  3. RITUXIMAB (RITUXIMAB) SUSPENSION FOR INJECTION [Suspect]
     Indication: MANTLE CELL LYMPHOMA
     Dosage: 857 MG, INTRAVENOUS
     Route: 042
     Dates: start: 20081103, end: 20081103
  4. DOXORUBICIN HCL [Suspect]
     Indication: MANTLE CELL LYMPHOMA
     Dosage: 40 MG, INTRAVENOUS
     Route: 042
     Dates: start: 20081103, end: 20081106

REACTIONS (8)
  - RENAL FAILURE [None]
  - DIARRHOEA [None]
  - CULTURE STOOL POSITIVE [None]
  - IMMUNOSUPPRESSION [None]
  - GENERAL PHYSICAL CONDITION ABNORMAL [None]
  - SYSTEMIC CANDIDA [None]
  - PNEUMONIA [None]
  - GENERALISED OEDEMA [None]
